FAERS Safety Report 16628944 (Version 2)
Quarter: 2019Q3

REPORT INFORMATION
  Report Type: Spontaneous
  Country: US (occurrence: US)
  Receive Date: 20190725
  Receipt Date: 20190903
  Transmission Date: 20191004
  Serious: No
  Sender: FDA-Public Use
  Company Number: US-BAYER-2019-139331

PATIENT
  Age: 29 Year
  Sex: Female
  Weight: 58.96 kg

DRUGS (6)
  1. MIRENA [Suspect]
     Active Substance: LEVONORGESTREL
     Indication: CONTRACEPTION
     Dosage: UNK
     Dates: start: 20190724, end: 20190724
  2. ADDERALL [Concomitant]
     Active Substance: AMPHETAMINE ASPARTATE\AMPHETAMINE SULFATE\DEXTROAMPHETAMINE SACCHARATE\DEXTROAMPHETAMINE SULFATE
     Dosage: 20 MG, QD
     Route: 048
  3. ANTISEPTIC SOLUTION [Concomitant]
     Dosage: UNK
     Dates: start: 20190719
  4. CYTOTEC [Concomitant]
     Active Substance: MISOPROSTOL
     Dosage: UNK
     Dates: start: 20190719
  5. XANAX [Concomitant]
     Active Substance: ALPRAZOLAM
     Dosage: UNK
     Dates: start: 20190719
  6. MIRENA [Suspect]
     Active Substance: LEVONORGESTREL

REACTIONS (7)
  - Procedural pain [None]
  - Complication of device insertion [None]
  - Vaginal discharge [None]
  - Metrorrhagia [None]
  - Ovulation pain [None]
  - Device difficult to use [None]
  - Device use issue [Recovered/Resolved]

NARRATIVE: CASE EVENT DATE: 201305
